FAERS Safety Report 9630598 (Version 3)
Quarter: 2013Q4

REPORT INFORMATION
  Report Type: Spontaneous
  Country: US (occurrence: US)
  Receive Date: 20131018
  Receipt Date: 20131125
  Transmission Date: 20140711
  Serious: No
  Sender: FDA-Public Use
  Company Number: US-009507513-1310USA006797

PATIENT
  Age: 60 Year
  Sex: Female

DRUGS (7)
  1. ASMANEX TWISTHALER [Suspect]
     Indication: ASTHMA
     Dosage: 220 MICROGRAM, TWO PUFFS, BID
     Route: 055
     Dates: start: 201309
  2. PROAIR (ALBUTEROL SULFATE) [Concomitant]
     Dosage: UNKNOWN
  3. FLUTICASONE [Concomitant]
     Dosage: UNKNOWN
  4. SINGULAIR [Concomitant]
     Dosage: UNKNOWN
     Route: 048
  5. ZYRTEC [Concomitant]
     Dosage: UNKNOWN
  6. MOBIC [Concomitant]
     Dosage: UNKNOWN
  7. VICODIN [Concomitant]
     Dosage: UNKNOWN

REACTIONS (5)
  - Dyspnoea [Not Recovered/Not Resolved]
  - Dyspnoea [Not Recovered/Not Resolved]
  - Headache [Not Recovered/Not Resolved]
  - Drug dose omission [Unknown]
  - Product quality issue [Unknown]
